FAERS Safety Report 24654686 (Version 1)
Quarter: 2024Q4

REPORT INFORMATION
  Report Type: Spontaneous
  Country: US (occurrence: US)
  Receive Date: 20241122
  Receipt Date: 20241122
  Transmission Date: 20250114
  Serious: Yes (Other)
  Sender: NOVO NORDISK
  Company Number: US-NOVOPROD-1166207

PATIENT
  Age: 8 Year
  Sex: Female

DRUGS (1)
  1. FIASP [Suspect]
     Active Substance: INSULIN ASPART
     Indication: Type 1 diabetes mellitus
     Dosage: NO MORE THEN 30 UNITS
     Route: 058
     Dates: start: 202206

REACTIONS (5)
  - Blood glucose increased [Recovered/Resolved]
  - Product odour abnormal [Unknown]
  - Product physical issue [Not Recovered/Not Resolved]
  - Product leakage [Unknown]
  - Liquid product physical issue [Not Recovered/Not Resolved]

NARRATIVE: CASE EVENT DATE: 20240120
